FAERS Safety Report 21705307 (Version 2)
Quarter: 2022Q4

REPORT INFORMATION
  Report Type: Spontaneous
  Country: BR (occurrence: BR)
  Receive Date: 20221209
  Receipt Date: 20221227
  Transmission Date: 20230112
  Serious: Yes (Other)
  Sender: FDA-Public Use
  Company Number: BR-SA-SAC20221208000612

PATIENT
  Age: 2 Year
  Sex: Female
  Weight: 15 kg

DRUGS (10)
  1. FEXOFENADINE HYDROCHLORIDE [Suspect]
     Active Substance: FEXOFENADINE HYDROCHLORIDE
     Dosage: UNK
     Route: 065
     Dates: start: 20221202
  2. PRELON [PREDNISOLONE] [Concomitant]
  3. RINOSORO [Concomitant]
  4. ZINKOL [Concomitant]
  5. KALOBA [PELARGONIUM SIDOIDES] [Concomitant]
  6. ADEFORTE [Concomitant]
     Active Substance: .ALPHA.-TOCOPHEROL, DL-\CHOLECALCIFEROL\VITAMIN A PALMITATE
  7. LEVOTHYROXINE [Concomitant]
     Active Substance: LEVOTHYROXINE
     Indication: Hypothyroidism
     Dosage: 2 PILLS ON MONDAY AND WEDNESDAY
  8. LEVOTHYROXINE [Concomitant]
     Active Substance: LEVOTHYROXINE
     Dosage: 2 TABLETS FROM THURSDAY TO SUNDAY
  9. BIODERMA [Concomitant]
     Indication: Dermatitis atopic
  10. SODIUM CHLORIDE [Concomitant]
     Active Substance: SODIUM CHLORIDE
     Indication: Nasal disorder

REACTIONS (3)
  - Choking [Unknown]
  - Product closure issue [Unknown]
  - Product leakage [Unknown]
